FAERS Safety Report 4926019-X (Version None)
Quarter: 2006Q1

REPORT INFORMATION
  Report Type: 
  Country: None (occurrence: None)
  Receive Date: 20060228
  Receipt Date: 20050727
  Transmission Date: 20060701
  Serious: No
  Sender: FDA-Public Use
  Company Number: US-GLAXOSMITHKLINE-A0567943A

PATIENT
  Age: 50 Year
  Sex: Female

DRUGS (14)
  1. LAMICTAL [Suspect]
     Indication: DEPRESSION
     Dosage: 200MG PER DAY
     Route: 048
     Dates: start: 20050601
  2. PROZAC [Concomitant]
  3. NORTRIPTYLINE HCL [Concomitant]
  4. METOPROLOL [Concomitant]
  5. PHENTERMINE [Concomitant]
  6. SINGULAIR [Concomitant]
  7. SYNTHROID [Concomitant]
  8. AMBIEN [Concomitant]
  9. SOMA [Concomitant]
  10. HYDROCODONE BITARTRATE [Concomitant]
  11. ALBUTEROL [Concomitant]
  12. ADVAIR DISKUS 100/50 [Concomitant]
  13. LEVBID [Concomitant]
  14. TRIAMTERENE AND HYDROCHLOROTHIAZIDE [Concomitant]

REACTIONS (4)
  - JOINT SWELLING [None]
  - OEDEMA PERIPHERAL [None]
  - ORAL MUCOSAL BLISTERING [None]
  - RASH [None]
